FAERS Safety Report 9236712 (Version 2)
Quarter: 2013Q3

REPORT INFORMATION
  Report Type: Spontaneous
  Country: US (occurrence: US)
  Receive Date: 20130417
  Receipt Date: 20130730
  Transmission Date: 20140515
  Serious: Yes (Hospitalization, Disabling)
  Sender: FDA-Public Use
  Company Number: US-GLAXOSMITHKLINE-A1020383A

PATIENT
  Age: 47 Year
  Sex: Male
  Weight: 72.3 kg

DRUGS (11)
  1. VENTOLIN [Suspect]
     Indication: PRODUCT USED FOR UNKNOWN INDICATION
     Route: 055
     Dates: start: 20121115
  2. ALBUTEROL + IPRATROPIUM BROMIDE [Suspect]
     Indication: PRODUCT USED FOR UNKNOWN INDICATION
     Route: 065
     Dates: start: 201210
  3. ALBUTEROL [Suspect]
     Indication: PRODUCT USED FOR UNKNOWN INDICATION
     Route: 065
     Dates: start: 201210
  4. DOXYCYCLINE [Concomitant]
  5. CEFAZOLIN [Concomitant]
  6. CEFTRIAXONE [Concomitant]
  7. LOVENOX [Concomitant]
  8. PEPCID [Concomitant]
  9. FENTANYL [Concomitant]
  10. VERSED [Concomitant]
  11. ZOFRAN [Concomitant]

REACTIONS (7)
  - Lung carcinoma cell type unspecified stage IV [Not Recovered/Not Resolved]
  - Pneumonia [Unknown]
  - Pericardial effusion [Unknown]
  - Cardiac tamponade [Unknown]
  - Endotracheal intubation [Unknown]
  - Pulmonary oedema [Unknown]
  - Pleural effusion [Unknown]
